FAERS Safety Report 25842181 (Version 2)
Quarter: 2025Q4

REPORT INFORMATION
  Report Type: Report from Study
  Country: US (occurrence: US)
  Receive Date: 20250924
  Receipt Date: 20251126
  Transmission Date: 20260118
  Serious: Yes (Other)
  Sender: ALEXION PHARMACEUTICALS
  Company Number: US-AstraZeneca-CH-00927130A

PATIENT
  Age: 24 Year
  Sex: Female

DRUGS (1)
  1. STRENSIQ [Suspect]
     Active Substance: ASFOTASE ALFA
     Indication: Hypophosphatasia
     Dosage: UNK

REACTIONS (11)
  - Systemic lupus erythematosus [Unknown]
  - Paraesthesia oral [Unknown]
  - Antinuclear antibody positive [Unknown]
  - Eye swelling [Unknown]
  - Lip swelling [Unknown]
  - Butterfly rash [Not Recovered/Not Resolved]
  - Fatigue [Unknown]
  - Fat redistribution [Not Recovered/Not Resolved]
  - Swelling face [Not Recovered/Not Resolved]
  - Oral allergy syndrome [Unknown]
  - Arthralgia [Not Recovered/Not Resolved]

NARRATIVE: CASE EVENT DATE: 20250101
